FAERS Safety Report 6906612-5 (Version None)
Quarter: 2010Q3

REPORT INFORMATION
  Report Type: 
  Country: None (occurrence: None)
  Receive Date: 20100804
  Receipt Date: 20100624
  Transmission Date: 20110219
  Serious: Yes (Death, Other)
  Sender: FDA-Public Use
  Company Number: US-BAXTER-2010BH003533

PATIENT
  Age: 48 Year
  Sex: Female

DRUGS (2)
  1. HEPARIN SODIUM [Suspect]
     Indication: HAEMODIALYSIS
     Route: 065
     Dates: start: 20071201, end: 20080101
  2. HEPARIN SODIUM [Suspect]
     Indication: PERITONEAL DIALYSIS
     Route: 065
     Dates: start: 20071201, end: 20080101

REACTIONS (17)
  - ABASIA [None]
  - CHILLS [None]
  - DEATH [None]
  - DIZZINESS [None]
  - DYSSTASIA [None]
  - HEADACHE [None]
  - HYPERHIDROSIS [None]
  - HYPOTENSION [None]
  - IMMOBILE [None]
  - INCOHERENT [None]
  - NAUSEA [None]
  - OEDEMA PERIPHERAL [None]
  - ORGAN FAILURE [None]
  - PHARYNGEAL OEDEMA [None]
  - PYREXIA [None]
  - RASH [None]
  - RENAL FAILURE ACUTE [None]
